FAERS Safety Report 10697784 (Version 2)
Quarter: 2015Q1

REPORT INFORMATION
  Report Type: Spontaneous
  Country: DK (occurrence: None)
  Receive Date: 20150106
  Receipt Date: 20150120
  Transmission Date: 20150721
  Serious: Yes (Other)
  Sender: FDA-Public Use
  Company Number: 20142696

PATIENT
  Sex: Male

DRUGS (11)
  1. DOXORUBICIN (DOXORUBICIN) [Concomitant]
     Active Substance: DOXORUBICIN
  2. CYTARABINE (CYTARABINE) [Concomitant]
     Active Substance: CYTARABINE
  3. DEXAMETHASONE (DEXAMETHASONE) [Concomitant]
     Active Substance: DEXAMETHASONE
  4. CYCLOPHOSPHAMIDE (CYCLOPHOSPHAMIDE) [Concomitant]
     Active Substance: CYCLOPHOSPHAMIDE
  5. METHOTREXATE (METHOTREXATE) [Suspect]
     Active Substance: METHOTREXATE
     Indication: BURKITT^S LYMPHOMA
     Dosage: X 12 MILLIGRAM IN ??DOSAGE INFORMATION : ON 12-AUG-3023 + ON 2-SEP-2013 12 MG IN 4.8ML
     Route: 037
     Dates: start: 20130812
  6. BRILIQUE (TICAGRELOR) [Concomitant]
     Active Substance: TICAGRELOR
  7. HJERTEMAGNYL (ACETYLSALICYLIC ACID, MAGNESIUM OXIDE, HEAVY) [Concomitant]
  8. IFOSFAMIDE (IFOSFAMIDE) [Concomitant]
     Active Substance: IFOSFAMIDE
  9. METHOTREXATE (METHOTREXATE) [Suspect]
     Active Substance: METHOTREXATE
     Indication: PRODUCT USE ISSUE
     Dosage: X 12 MILLIGRAM IN ??DOSAGE INFORMATION : ON 12-AUG-3023 + ON 2-SEP-2013 12 MG IN 4.8ML
     Route: 037
     Dates: start: 20130812
  10. VINCRISTINE (VINCRISTINE) [Concomitant]
     Active Substance: VINCRISTINE
  11. ATORVASTATIN (ATORVASTATIN) [Concomitant]
     Active Substance: ATORVASTATIN

REACTIONS (6)
  - Myelopathy [None]
  - Sensory disturbance [None]
  - Quadriplegia [None]
  - Hypoaesthesia [None]
  - Gastrointestinal disorder [None]
  - Pain [None]

NARRATIVE: CASE EVENT DATE: 201309
